FAERS Safety Report 21847263 (Version 14)
Quarter: 2023Q4

REPORT INFORMATION
  Report Type: Spontaneous
  Country: US (occurrence: US)
  Receive Date: 20230111
  Receipt Date: 20231222
  Transmission Date: 20240110
  Serious: Yes (Other)
  Sender: FDA-Public Use
  Company Number: US-GLAXOSMITHKLINE-US2023AMR002070

PATIENT

DRUGS (4)
  1. ZEJULA [Suspect]
     Active Substance: NIRAPARIB
     Indication: Ovarian cancer
     Dosage: 200 MG, QD
  2. ZEJULA [Suspect]
     Active Substance: NIRAPARIB
     Dosage: 1 DF, QD
  3. ZEJULA [Suspect]
     Active Substance: NIRAPARIB
     Indication: Chemotherapy
     Dosage: 200 MG, QD
     Dates: start: 20230824
  4. ZEJULA [Suspect]
     Active Substance: NIRAPARIB
     Indication: Ovarian cancer
     Dosage: 100 MG, QD

REACTIONS (18)
  - Haemorrhage [Unknown]
  - Abdominal pain upper [Not Recovered/Not Resolved]
  - Decreased appetite [Not Recovered/Not Resolved]
  - Headache [Not Recovered/Not Resolved]
  - Abdominal distension [Not Recovered/Not Resolved]
  - Chest discomfort [Unknown]
  - Palpitations [Unknown]
  - Cough [Recovered/Resolved]
  - Dyspnoea [Unknown]
  - Back pain [Not Recovered/Not Resolved]
  - Adverse drug reaction [Unknown]
  - Red blood cell count decreased [Unknown]
  - Pruritus [Not Recovered/Not Resolved]
  - Tooth infection [Unknown]
  - Fatigue [Unknown]
  - Extra dose administered [Not Recovered/Not Resolved]
  - Product dose omission in error [Unknown]
  - Product use in unapproved indication [Unknown]

NARRATIVE: CASE EVENT DATE: 20230106
